FAERS Safety Report 17668280 (Version 2)
Quarter: 2020Q2

REPORT INFORMATION
  Report Type: Spontaneous
  Country: IR (occurrence: IR)
  Receive Date: 20200415
  Receipt Date: 20200422
  Transmission Date: 20200713
  Serious: Yes (Hospitalization, Other)
  Sender: FDA-Public Use
  Company Number: IR-VISTAPHARM, INC.-VER202004-000777

PATIENT
  Age: 30 Month
  Sex: Male

DRUGS (1)
  1. METHADONE [Suspect]
     Active Substance: METHADONE HYDROCHLORIDE
     Indication: PRODUCT USED FOR UNKNOWN INDICATION
     Dosage: 5 MG
     Route: 048

REACTIONS (9)
  - Restlessness [Recovered/Resolved]
  - Toxicity to various agents [Recovered/Resolved]
  - Hydrocephalus [Recovered/Resolved]
  - Loss of consciousness [Recovered/Resolved]
  - Torticollis [Recovered/Resolved]
  - Decerebrate posture [Recovered/Resolved]
  - Tonic convulsion [Recovered/Resolved]
  - Encephalopathy [Recovered/Resolved]
  - Decorticate posture [Recovered/Resolved]
